FAERS Safety Report 16971905 (Version 4)
Quarter: 2020Q1

REPORT INFORMATION
  Report Type: Report from Study
  Country: JP (occurrence: JP)
  Receive Date: 20191029
  Receipt Date: 20200107
  Transmission Date: 20200409
  Serious: Yes (Life-Threatening)
  Sender: FDA-Public Use
  Company Number: JP-PFIZER INC-2019467175

PATIENT
  Age: 26 Year
  Sex: Male
  Weight: 61 kg

DRUGS (5)
  1. RAPALIMUS [Suspect]
     Active Substance: SIROLIMUS
     Dosage: 2 MG, 1X/DAY
     Route: 048
     Dates: start: 20190130, end: 20190315
  2. PREDONINE [Suspect]
     Active Substance: PREDNISOLONE
     Indication: PRIMARY IMMUNODEFICIENCY SYNDROME
     Dosage: UNK
     Route: 048
  3. HIZENTRA [Concomitant]
     Active Substance: HUMAN IMMUNOGLOBULIN G
     Indication: PRIMARY IMMUNODEFICIENCY SYNDROME
     Dosage: UNK
     Route: 058
  4. PREDONINE [Suspect]
     Active Substance: PREDNISOLONE
     Dosage: 10 MG, UNK (MAINTENANCE DOSE)
     Route: 048
     Dates: start: 20190413
  5. RAPALIMUS [Suspect]
     Active Substance: SIROLIMUS
     Indication: PRIMARY IMMUNODEFICIENCY SYNDROME
     Dosage: 1 MG, 1X/DAY
     Route: 048
     Dates: start: 20190125, end: 20190129

REACTIONS (2)
  - Pneumocystis jirovecii pneumonia [Recovering/Resolving]
  - Hyperlipidaemia [Recovering/Resolving]

NARRATIVE: CASE EVENT DATE: 20190214
